FAERS Safety Report 11349672 (Version 1)
Quarter: 2015Q3

REPORT INFORMATION
  Report Type: Spontaneous
  Country: GB (occurrence: GB)
  Receive Date: 20150807
  Receipt Date: 20150807
  Transmission Date: 20151125
  Serious: Yes (Disabling)
  Sender: FDA-Public Use
  Company Number: GB-TEVA-582839ACC

PATIENT
  Age: 31 Year
  Sex: Male
  Weight: 67 kg

DRUGS (4)
  1. VITAMIN D [Concomitant]
     Active Substance: CHOLECALCIFEROL
  2. PARACETAMOL [Concomitant]
     Active Substance: ACETAMINOPHEN
  3. CIPROFLOXACIN. [Suspect]
     Active Substance: CIPROFLOXACIN
     Indication: PROSTATITIS
     Dates: start: 20150323, end: 20150412
  4. COD LIVER OIL [Concomitant]
     Active Substance: COD LIVER OIL

REACTIONS (6)
  - Malaise [Not Recovered/Not Resolved]
  - Muscle fatigue [Not Recovered/Not Resolved]
  - Muscle spasms [Not Recovered/Not Resolved]
  - Back pain [Not Recovered/Not Resolved]
  - Myalgia [Not Recovered/Not Resolved]
  - Dizziness [Not Recovered/Not Resolved]

NARRATIVE: CASE EVENT DATE: 20150327
